FAERS Safety Report 12916241 (Version 1)
Quarter: 2016Q4

REPORT INFORMATION
  Report Type: Spontaneous
  Country: CA (occurrence: US)
  Receive Date: 20161107
  Receipt Date: 20161107
  Transmission Date: 20170207
  Serious: Yes (Other)
  Sender: FDA-Public Use
  Company Number: None

PATIENT
  Age: 22 Year
  Sex: Female
  Weight: 61.24 kg

DRUGS (2)
  1. PARAGARD T 380A [Suspect]
     Active Substance: COPPER
     Indication: CONTRACEPTION
     Dosage: INTRAUTERINE COPPER CONTRACEPTIV - 1 SURGICAL PROCEDURE
     Route: 067
     Dates: start: 20160105
  2. PARAGARD T 380A [Concomitant]
     Active Substance: COPPER

REACTIONS (2)
  - Pain [None]
  - Complication associated with device [None]

NARRATIVE: CASE EVENT DATE: 20161106
